FAERS Safety Report 8386804-1 (Version None)
Quarter: 2012Q2

REPORT INFORMATION
  Report Type: 
  Country: None (occurrence: None)
  Receive Date: 20120525
  Receipt Date: 20120514
  Transmission Date: 20120825
  Serious: Yes (Hospitalization)
  Sender: FDA-Public Use
  Company Number: JP-BRISTOL-MYERS SQUIBB COMPANY-16119729

PATIENT
  Age: 66 Year
  Sex: Male

DRUGS (3)
  1. NORVIR [Suspect]
     Indication: HIV INFECTION
     Route: 048
     Dates: start: 20101014, end: 20101107
  2. EPZICOM [Suspect]
     Indication: HIV INFECTION
     Dosage: 1DF:1TABS STOPPED ON 7NOV10 RESTART ON 12NOV11
     Route: 048
     Dates: start: 20101014
  3. REYATAZ [Suspect]
     Indication: HIV INFECTION
     Route: 048
     Dates: start: 20101014, end: 20101107

REACTIONS (1)
  - RENAL IMPAIRMENT [None]
